FAERS Safety Report 16638603 (Version 1)
Quarter: 2019Q3

REPORT INFORMATION
  Report Type: Spontaneous
  Country: JP (occurrence: JP)
  Receive Date: 20190726
  Receipt Date: 20190726
  Transmission Date: 20191004
  Serious: Yes (Hospitalization)
  Sender: FDA-Public Use
  Company Number: PHHY2019JP168674

PATIENT
  Age: 63 Year
  Sex: Male

DRUGS (2)
  1. FLUTICASONE. [Suspect]
     Active Substance: FLUTICASONE
     Indication: ASTHMA
     Dosage: 500 UG/DAY
     Route: 055
  2. PREDNISOLONE. [Suspect]
     Active Substance: PREDNISOLONE
     Indication: ASTHMA
     Dosage: 30 MG, QD
     Route: 048

REACTIONS (4)
  - Amoebic colitis [Recovered/Resolved]
  - Gastric ulcer [Recovered/Resolved]
  - Gastrointestinal erosion [Recovered/Resolved]
  - Amoebiasis [Recovered/Resolved]
